FAERS Safety Report 7369039-0 (Version None)
Quarter: 2011Q1

REPORT INFORMATION
  Report Type: 
  Country: None (occurrence: None)
  Receive Date: 20110318
  Receipt Date: 20110318
  Transmission Date: 20110831
  Serious: Yes (Life-Threatening, Hospitalization)
  Sender: FDA-Public Use
  Company Number: None

PATIENT
  Age: 25 Year
  Sex: Male
  Weight: 93.441 kg

DRUGS (10)
  1. BENZTROPINE [Concomitant]
  2. CLARITHROMYCIN [Concomitant]
  3. LITHIUM [Concomitant]
  4. ASPIRIN [Concomitant]
  5. CLOZAPINE [Suspect]
     Indication: PSYCHOTIC DISORDER
     Dosage: 100 MG AM AND 200 MG US PO
     Route: 048
     Dates: start: 20110107, end: 20110121
  6. SIMETHICONE [Concomitant]
  7. ALBUTEROL INHALER [Concomitant]
  8. CLONAZEPAM [Concomitant]
  9. PROMETHAZINE [Concomitant]
  10. MULTI-VITAMIN [Concomitant]

REACTIONS (14)
  - PYREXIA [None]
  - BUNDLE BRANCH BLOCK LEFT [None]
  - CARDIAC FAILURE [None]
  - BACTERIAL INFECTION [None]
  - FLUID OVERLOAD [None]
  - PRODUCT FORMULATION ISSUE [None]
  - NAUSEA [None]
  - VOMITING [None]
  - CARDIOMEGALY [None]
  - PRODUCT CONTAMINATION [None]
  - TACHYCARDIA [None]
  - ATELECTASIS [None]
  - BUNDLE BRANCH BLOCK RIGHT [None]
  - MYOCARDITIS [None]
